FAERS Safety Report 8209867-2 (Version None)
Quarter: 2012Q1

REPORT INFORMATION
  Report Type: 
  Country: None (occurrence: None)
  Receive Date: 20120314
  Receipt Date: 20120309
  Transmission Date: 20120608
  Serious: Yes (Other)
  Sender: FDA-Public Use
  Company Number: US-BAYER-2012-013496

PATIENT
  Age: 56 Year
  Sex: Female

DRUGS (9)
  1. OPTIMARK [Suspect]
     Indication: HEADACHE
  2. OPTIMARK [Suspect]
     Indication: NUCLEAR MAGNETIC RESONANCE IMAGING BRAIN
     Dosage: 15 ML, ONCE
     Route: 042
     Dates: start: 20060602, end: 20060602
  3. MAGNEVIST [Suspect]
     Indication: RENAL MASS
  4. SENSIPAR [Concomitant]
     Indication: DIALYSIS
     Dosage: 90 MG, QD
  5. LANTUS [Concomitant]
     Indication: DIABETES MELLITUS
     Dosage: 20 U, QD
     Dates: start: 20050401
  6. RENVELA [Concomitant]
     Indication: DIALYSIS
     Dosage: QID WITH MEALS
  7. MAGNEVIST [Suspect]
     Indication: NUCLEAR MAGNETIC RESONANCE IMAGING
     Dosage: UNK
     Route: 042
     Dates: start: 20040521, end: 20040521
  8. OPTIMARK [Suspect]
     Indication: DISORIENTATION
  9. OPTIMARK [Suspect]
     Indication: MUSCULAR WEAKNESS

REACTIONS (13)
  - NEPHROGENIC SYSTEMIC FIBROSIS [None]
  - ABASIA [None]
  - FIBROSIS [None]
  - EMOTIONAL DISTRESS [None]
  - DEPRESSION [None]
  - MOBILITY DECREASED [None]
  - SCAR [None]
  - GENERAL PHYSICAL HEALTH DETERIORATION [None]
  - PAIN [None]
  - DEFORMITY [None]
  - INJURY [None]
  - ANHEDONIA [None]
  - ANXIETY [None]
